FAERS Safety Report 5596635-3 (Version None)
Quarter: 2007Q4

REPORT INFORMATION
  Report Type: 
  Country: None (occurrence: None)
  Receive Date: 20071219
  Receipt Date: 20070912
  Transmission Date: 20080405
  Serious: Yes (Other)
  Sender: FDA-Public Use
  Company Number: HQWYE702220AUG07

PATIENT
  Age: 71 Year
  Sex: Male
  Weight: 79 kg

DRUGS (9)
  1. TORISEL [Suspect]
     Indication: RENAL CELL CARCINOMA STAGE UNSPECIFIED
     Dosage: 25 MG WEEKLY, INTRAVENOUS
     Route: 042
     Dates: start: 20070815
  2. COMPAZINE (PROCHLORPERAZINE EDISYLATE) [Concomitant]
  3. DURAGESIC-100 [Concomitant]
  4. FINASTERIDE [Concomitant]
  5. ATIVAN [Concomitant]
  6. MEGACE [Concomitant]
  7. MIRAPEX [Concomitant]
  8. STALEVO 100 [Concomitant]
  9. ZANTAC [Concomitant]

REACTIONS (1)
  - CHEST DISCOMFORT [None]
